FAERS Safety Report 7840877-0 (Version None)
Quarter: 2011Q4

REPORT INFORMATION
  Report Type: 
  Country: None (occurrence: None)
  Receive Date: 20111021
  Receipt Date: 20111021
  Transmission Date: 20120403
  Serious: No
  Sender: FDA-Public Use
  Company Number: None

PATIENT
  Sex: Female

DRUGS (1)
  1. VYVANSE [Suspect]
     Dosage: 30MG AM PO
     Route: 048

REACTIONS (1)
  - RASH PRURITIC [None]
